FAERS Safety Report 9856918 (Version 1)
Quarter: 2014Q1

REPORT INFORMATION
  Report Type: Spontaneous
  Country: US (occurrence: None)
  Receive Date: 20140128
  Receipt Date: 20140128
  Transmission Date: 20141002
  Serious: Yes (Hospitalization)
  Sender: FDA-Public Use
  Company Number: VAL_02950_2014

PATIENT
  Age: 49 Year
  Sex: Female

DRUGS (4)
  1. CALCITRIOL [Suspect]
     Indication: HYPOCALCAEMIA
     Route: 048
  2. CALCIUM CARBONATE [Suspect]
     Indication: HYPOCALCAEMIA
  3. POTASSIUM PHOSPHATE [Concomitant]
  4. VITAMIN D /00107901/ [Concomitant]

REACTIONS (2)
  - Nephrocalcinosis [None]
  - Blood creatinine increased [None]
